FAERS Safety Report 19980685 (Version 1)
Quarter: 2021Q4

REPORT INFORMATION
  Report Type: Spontaneous
  Country: GB (occurrence: GB)
  Receive Date: 20211022
  Receipt Date: 20211022
  Transmission Date: 20220303
  Serious: Yes (Other)
  Sender: FDA-Public Use
  Company Number: GB-MHRA-TPP14379855C8065733YC1633589452432

PATIENT
  Age: 27 Year
  Sex: Female
  Weight: 97 kg

DRUGS (4)
  1. CODEINE [Suspect]
     Active Substance: CODEINE
     Indication: Ill-defined disorder
     Dosage: UNK
     Route: 065
     Dates: start: 20211006
  2. METFORMIN [Concomitant]
     Active Substance: METFORMIN HYDROCHLORIDE
     Indication: Ill-defined disorder
     Dosage: TAKE ONE 3 TIMES/DAY
     Route: 065
     Dates: start: 20210909, end: 20211007
  3. NORTRIPTYLINE [Concomitant]
     Active Substance: NORTRIPTYLINE
     Indication: Ill-defined disorder
     Dosage: TAKE TWO AT NIGHT
     Route: 065
     Dates: start: 20210303
  4. TRAMADOL [Concomitant]
     Active Substance: TRAMADOL
     Indication: Ill-defined disorder
     Dosage: TAKE TWO, 4 TIMES/ DAY
     Route: 065
     Dates: start: 20210909, end: 20211007

REACTIONS (1)
  - Adverse drug reaction [Unknown]

NARRATIVE: CASE EVENT DATE: 20211007
